FAERS Safety Report 24079217 (Version 1)
Quarter: 2024Q3

REPORT INFORMATION
  Report Type: Spontaneous
  Country: US (occurrence: None)
  Receive Date: 20240710
  Receipt Date: 20240710
  Transmission Date: 20241017
  Serious: No
  Sender: Public
  Company Number: None

PATIENT
  Age: 57 Year
  Sex: Female
  Weight: 90 kg

DRUGS (3)
  1. ZEPBOUND [Suspect]
     Active Substance: TIRZEPATIDE
     Indication: Weight decreased
     Dosage: OTHER QUANTITY : 4 INJECTION(S)?OTHER FREQUENCY : 1 X PER WEEK?
     Route: 058
     Dates: start: 20240514, end: 20240707
  2. PRAVACHOL [Concomitant]
     Active Substance: PRAVASTATIN SODIUM
  3. MAGNESIU  CLYCINATE [Concomitant]

REACTIONS (4)
  - Diarrhoea [None]
  - Gastroenteritis viral [None]
  - Constipation [None]
  - Vomiting [None]

NARRATIVE: CASE EVENT DATE: 20240623
